FAERS Safety Report 7202860-8 (Version None)
Quarter: 2010Q4

REPORT INFORMATION
  Report Type: 
  Country: None (occurrence: None)
  Receive Date: 20101229
  Receipt Date: 20101220
  Transmission Date: 20110411
  Serious: Yes (Hospitalization, Other)
  Sender: FDA-Public Use
  Company Number: US-TEVA-260624USA

PATIENT
  Sex: Male

DRUGS (1)
  1. PROPOXYPHENE NAPSYLATE AND ACETAMINOPHEN [Suspect]
     Dates: start: 19940101

REACTIONS (4)
  - ANEURYSM [None]
  - ANGIOPATHY [None]
  - BACK DISORDER [None]
  - CARDIAC DISORDER [None]
